FAERS Safety Report 12829385 (Version 1)
Quarter: 2016Q4

REPORT INFORMATION
  Report Type: Spontaneous
  Country: US (occurrence: US)
  Receive Date: 20161007
  Receipt Date: 20161007
  Transmission Date: 20170207
  Serious: Yes (Other)
  Sender: FDA-Public Use
  Company Number: US-SA-2016SA052001

PATIENT
  Age: 47 Year
  Sex: Female

DRUGS (5)
  1. NUVIGIL [Concomitant]
     Active Substance: ARMODAFINIL
  2. BUSPAR [Concomitant]
     Active Substance: BUSPIRONE HYDROCHLORIDE
  3. RITALIN [Concomitant]
     Active Substance: METHYLPHENIDATE HYDROCHLORIDE
  4. AUBAGIO [Suspect]
     Active Substance: TERIFLUNOMIDE
     Indication: MULTIPLE SCLEROSIS
     Route: 048
  5. SYNTHROID [Concomitant]
     Active Substance: LEVOTHYROXINE SODIUM

REACTIONS (8)
  - Mammogram abnormal [Unknown]
  - Pain in extremity [Unknown]
  - Pain [Unknown]
  - Mouth ulceration [Recovered/Resolved]
  - Multiple sclerosis relapse [Unknown]
  - Axillary pain [Unknown]
  - Mobility decreased [Unknown]
  - Headache [Unknown]
